FAERS Safety Report 6082069-4 (Version None)
Quarter: 2009Q1

REPORT INFORMATION
  Report Type: 
  Country: None (occurrence: None)
  Receive Date: 20090218
  Receipt Date: 20081024
  Transmission Date: 20090719
  Serious: No
  Sender: FDA-Public Use
  Company Number: US-BRISTOL-MYERS SQUIBB COMPANY-14383590

PATIENT
  Age: 60 Year
  Sex: Male
  Weight: 74 kg

DRUGS (2)
  1. METFORMIN HCL [Suspect]
     Indication: BLOOD GLUCOSE INCREASED
     Route: 048
     Dates: start: 20080801, end: 20080101
  2. ANDROGEL [Suspect]
     Indication: SEXUAL DYSFUNCTION
     Dosage: STRENGTH- 1% GEL
     Route: 003

REACTIONS (6)
  - BACK PAIN [None]
  - BLOOD GLUCOSE INCREASED [None]
  - FATIGUE [None]
  - MUSCULOSKELETAL PAIN [None]
  - NOCTURIA [None]
  - WEIGHT DECREASED [None]
